FAERS Safety Report 20175031 (Version 2)
Quarter: 2023Q4

REPORT INFORMATION
  Report Type: Report from Study
  Country: FR (occurrence: FR)
  Receive Date: 20211213
  Receipt Date: 20231121
  Transmission Date: 20240109
  Serious: Yes (Other)
  Sender: FDA-Public Use
  Company Number: FR-JNJFOC-20200711702

PATIENT
  Age: 70 Year
  Sex: Male

DRUGS (4)
  1. DEXAMETHASONE [Suspect]
     Active Substance: DEXAMETHASONE
     Indication: Plasma cell myeloma
     Dosage: 40 MG 0.5 WK 2 WEEKS PER CYCLE
     Route: 065
     Dates: end: 20180730
  2. VELCADE [Suspect]
     Active Substance: BORTEZOMIB
     Indication: Plasma cell myeloma
     Dosage: 1.3 MG/SQ. METER 0.5 WK 2 WEEKS PER CYCLE
     Route: 065
     Dates: end: 20180730
  3. LENALIDOMIDE [Suspect]
     Active Substance: LENALIDOMIDE
     Indication: Plasma cell myeloma
     Dosage: 25 MILLIGRAM, 0.14 WK 3 WEEKS PER CYCLE
     Route: 065
     Dates: end: 20180730
  4. LENALIDOMIDE [Suspect]
     Active Substance: LENALIDOMIDE
     Dosage: 10 MG 0.14 WK 10 MG/DOSE7 DOSE/WEEK 3 WEEK/CYCLE
     Route: 065

REACTIONS (4)
  - Neuropathy peripheral [Unknown]
  - Product use issue [Unknown]
  - Off label use [Unknown]
  - Intentional product use issue [Unknown]

NARRATIVE: CASE EVENT DATE: 20180713
